FAERS Safety Report 15385350 (Version 1)
Quarter: 2018Q3

REPORT INFORMATION
  Report Type: Report from Study
  Country: AT (occurrence: AT)
  Receive Date: 20180914
  Receipt Date: 20180914
  Transmission Date: 20181010
  Serious: Yes (Death, Life-Threatening, Hospitalization, Other)
  Sender: FDA-Public Use
  Company Number: AT-BRISTOL-MYERS SQUIBB COMPANY-BMS-2018-082802

PATIENT
  Age: 68 Year
  Sex: Male
  Weight: 50 kg

DRUGS (61)
  1. NIVOLUMAB [Suspect]
     Active Substance: NIVOLUMAB
     Indication: LUNG NEOPLASM MALIGNANT
     Route: 065
  2. THYREX [Concomitant]
     Active Substance: LEVOTHYROXINE SODIUM
     Indication: THYROID DISORDER
     Dosage: 125 ?G/DAILY
     Route: 048
  3. THROMBO ASS [Concomitant]
     Active Substance: ASPIRIN
     Indication: ARTERIOSCLEROSIS
     Dosage: 100 MG, DAILY
     Route: 048
     Dates: end: 20180625
  4. HYDAL [Concomitant]
     Active Substance: HYDROMORPHONE HYDROCHLORIDE
     Indication: PAIN
     Dosage: 4 MG, DAILY
     Route: 048
     Dates: end: 20180528
  5. LANITOP [Concomitant]
     Active Substance: METILDIGOXIN
     Indication: ATRIAL FIBRILLATION
     Dosage: 0.1 MG, DAILY
     Route: 048
     Dates: start: 20180213, end: 20180625
  6. LOVENOX [Concomitant]
     Active Substance: ENOXAPARIN SODIUM
     Indication: PRODUCT USED FOR UNKNOWN INDICATION
     Dosage: 40 MG, DAILY
     Route: 048
     Dates: start: 20180208, end: 20180208
  7. LOVENOX [Concomitant]
     Active Substance: ENOXAPARIN SODIUM
     Indication: PRODUCT USED FOR UNKNOWN INDICATION
     Dosage: 40 MG, DAILY
     Route: 058
     Dates: start: 20180213
  8. ELOMEL [Concomitant]
     Indication: PRODUCT USED FOR UNKNOWN INDICATION
     Dosage: 500 ML, PRN
     Route: 042
     Dates: start: 20180621, end: 20180628
  9. NACL [Concomitant]
     Active Substance: SODIUM CHLORIDE
     Indication: HYPONATRAEMIA
     Dosage: 3 TAB, DAILY
     Route: 048
     Dates: start: 20180220
  10. CYKLOKAPRON [Concomitant]
     Active Substance: TRANEXAMIC ACID
     Indication: HAEMOPTYSIS
     Dosage: 1 TAB, DAILY
     Route: 048
     Dates: start: 20180214, end: 20180214
  11. AVELOX [Concomitant]
     Active Substance: MOXIFLOXACIN HYDROCHLORIDE
     Indication: C-REACTIVE PROTEIN INCREASED
     Dosage: 400 MG, DAILY
     Route: 048
     Dates: start: 20180528, end: 201806
  12. NOVALGIN                           /00169801/ [Concomitant]
     Active Substance: ACETAMINOPHEN\CAFFEINE\PROPYPHENAZONE
     Indication: PRODUCT USED FOR UNKNOWN INDICATION
     Dosage: 4000 MG, DAILY
     Route: 048
     Dates: start: 20180623, end: 20180625
  13. CAPSAICIN. [Concomitant]
     Active Substance: CAPSAICIN
     Indication: PRODUCT USED FOR UNKNOWN INDICATION
     Dosage: UNK, PRN
     Route: 061
     Dates: start: 2017, end: 201802
  14. ELOMEL [Concomitant]
     Indication: PRODUCT USED FOR UNKNOWN INDICATION
     Dosage: 500 ML, PRN
     Route: 042
     Dates: start: 20180208, end: 20180213
  15. CONCOR [Concomitant]
     Active Substance: BISOPROLOL FUMARATE
     Indication: PRODUCT USED FOR UNKNOWN INDICATION
     Dosage: 5 MG, DAILY
     Route: 048
     Dates: start: 20180625
  16. GLANDOMED [Concomitant]
     Indication: STOMATITIS
     Dosage: 20 ML, PRN
     Route: 048
     Dates: start: 201802
  17. PROFENID [Concomitant]
     Active Substance: KETOPROFEN
     Indication: PAIN
     Dosage: 450 MG, DAILY
     Route: 048
     Dates: start: 201806, end: 20180625
  18. HYDAL [Concomitant]
     Active Substance: HYDROMORPHONE HYDROCHLORIDE
     Indication: PRODUCT USED FOR UNKNOWN INDICATION
     Dosage: 8 MG, DAILY
     Route: 048
     Dates: start: 20180529, end: 20180625
  19. LASIX [Concomitant]
     Active Substance: FUROSEMIDE
     Indication: SUPERIOR VENA CAVA SYNDROME
     Dosage: 20 MG, DAILY
     Route: 048
     Dates: start: 20180220, end: 20180621
  20. FORTECORTIN                        /00016001/ [Concomitant]
     Active Substance: DEXAMETHASONE
     Indication: SUPERIOR VENA CAVA SYNDROME
     Dosage: 8 MG, DAILY
     Route: 048
     Dates: start: 20180216, end: 20180219
  21. NIVOLUMAB [Suspect]
     Active Substance: NIVOLUMAB
     Indication: MALIGNANT MELANOMA
     Dosage: 1 DF, Q2WK
     Route: 065
     Dates: start: 20180125, end: 20180125
  22. PASPERTIN                          /00041902/ [Concomitant]
     Active Substance: METOCLOPRAMIDE HYDROCHLORIDE
     Indication: NAUSEA
     Dosage: 1 DF, ONCE
     Route: 042
     Dates: start: 20180213, end: 20180213
  23. TRICLOSAN. [Concomitant]
     Active Substance: TRICLOSAN
     Indication: PRODUCT USED FOR UNKNOWN INDICATION
     Dosage: 2 %, BID
     Route: 061
     Dates: start: 2017, end: 201802
  24. BERODUAL [Concomitant]
     Active Substance: FENOTEROL HYDROBROMIDE\IPRATROPIUM BROMIDE
     Indication: CHRONIC OBSTRUCTIVE PULMONARY DISEASE
     Dosage: 0.05 MG, PRN
     Route: 048
     Dates: end: 2018
  25. FORTECORTIN                        /00016001/ [Concomitant]
     Active Substance: DEXAMETHASONE
     Indication: GENERAL PHYSICAL HEALTH DETERIORATION
     Dosage: 4 MG, DAILY
     Route: 048
     Dates: start: 20180627, end: 20180627
  26. GUTTALAX [Concomitant]
     Indication: CONSTIPATION
     Dosage: 10 GTT, PRN
     Route: 048
     Dates: start: 20180528, end: 201806
  27. MUCOBENE [Concomitant]
     Indication: INCREASED BRONCHIAL SECRETION
     Dosage: 600 MG, DAILY
     Route: 048
     Dates: start: 20180528, end: 201806
  28. URBASON                            /00049601/ [Concomitant]
     Active Substance: METHYLPREDNISOLONE
     Indication: GENERAL PHYSICAL HEALTH DETERIORATION
     Dosage: 64 MG, DAILY
     Route: 042
     Dates: start: 20180625, end: 20180625
  29. HALDOL [Concomitant]
     Active Substance: HALOPERIDOL
     Indication: NAUSEA
     Dosage: 11 GTT, DAILY
     Route: 048
     Dates: start: 20180625, end: 20180625
  30. SORTIS [Concomitant]
     Active Substance: ATORVASTATIN
     Indication: ARTERIOSCLEROSIS
     Dosage: 40 MG, DAILY
     Route: 048
     Dates: start: 2017, end: 20180621
  31. NOVALGIN                           /00169801/ [Concomitant]
     Active Substance: ACETAMINOPHEN\CAFFEINE\PROPYPHENAZONE
     Indication: PAIN
     Dosage: 2000 MG, DAILY
     Route: 048
     Dates: start: 2017, end: 20180622
  32. ZOFRAN [Concomitant]
     Active Substance: ONDANSETRON HYDROCHLORIDE
     Indication: ANTIEMETIC SUPPORTIVE CARE
     Dosage: 8 MG, PRN
     Route: 048
     Dates: start: 2017
  33. SEDACORON [Concomitant]
     Active Substance: AMIODARONE HYDROCHLORIDE
     Indication: ATRIAL FIBRILLATION
     Dosage: 600 MG, DAILY
     Route: 048
     Dates: start: 20180210, end: 20180212
  34. DRONABINOL. [Concomitant]
     Active Substance: DRONABINOL
     Indication: PAIN
     Dosage: 3 GTT,DAILY
     Route: 048
     Dates: start: 20180528, end: 201806
  35. XANOR [Concomitant]
     Active Substance: ALPRAZOLAM
     Indication: PRODUCT USED FOR UNKNOWN INDICATION
     Dosage: 0.5 MG, DAILY
     Route: 048
     Dates: start: 20180627, end: 20180627
  36. VENDAL                             /00036302/ [Concomitant]
     Indication: PAIN
     Dosage: 10 MG, PRN
     Route: 048
     Dates: start: 2017, end: 20180625
  37. VENDAL                             /00036302/ [Concomitant]
     Indication: PRODUCT USED FOR UNKNOWN INDICATION
     Dosage: 100 MG, UNK
     Route: 042
     Dates: start: 20180627, end: 20180628
  38. PASPERTIN                          /00041902/ [Concomitant]
     Active Substance: METOCLOPRAMIDE HYDROCHLORIDE
     Indication: ANTIEMETIC SUPPORTIVE CARE
     Dosage: 10 MG, PRN
     Route: 048
     Dates: start: 2017, end: 2018
  39. HALCION [Concomitant]
     Active Substance: TRIAZOLAM
     Indication: INSOMNIA
     Dosage: 0.25 MG, DAILY
     Route: 048
     Dates: start: 201802, end: 20180624
  40. LASIX [Concomitant]
     Active Substance: FUROSEMIDE
     Indication: PRODUCT USED FOR UNKNOWN INDICATION
     Dosage: 40 MG, DAILY
     Route: 042
     Dates: start: 20180623, end: 20180626
  41. LOVENOX [Concomitant]
     Active Substance: ENOXAPARIN SODIUM
     Indication: PRODUCT USED FOR UNKNOWN INDICATION
     Dosage: 80 MG, DAILY
     Route: 058
     Dates: start: 20180209, end: 20180211
  42. CORMAGNESIN                        /01486818/ [Concomitant]
     Indication: ATRIAL FIBRILLATION
     Dosage: 200 MG, DAILY
     Route: 042
     Dates: start: 20180208, end: 20180208
  43. GILOTRIF [Concomitant]
     Active Substance: AFATINIB
     Indication: PROPHYLAXIS
     Dosage: 30 MG, DAILY
     Route: 048
     Dates: start: 20180220, end: 20180529
  44. CONCOR [Concomitant]
     Active Substance: BISOPROLOL FUMARATE
     Indication: ATRIAL FIBRILLATION
     Dosage: 1.25 MG, DAILY
     Route: 048
     Dates: start: 20180215, end: 20180624
  45. AQUA TEARS [Concomitant]
     Indication: PRODUCT USED FOR UNKNOWN INDICATION
     Dosage: 1 GTT, PRN
     Route: 031
     Dates: start: 20180208, end: 20180220
  46. XANOR [Concomitant]
     Active Substance: ALPRAZOLAM
     Indication: ANXIOLYTIC THERAPY
     Dosage: 0.5 MG, DAILY
     Route: 048
     Dates: start: 20180623, end: 20180623
  47. APREDNISLON [Concomitant]
     Active Substance: PREDNISOLONE
     Indication: SUPERIOR VENA CAVA SYNDROME
     Dosage: 25 MG, DAILY
     Route: 048
     Dates: start: 20180213, end: 20180215
  48. BEPANTHEN                          /00178901/ [Concomitant]
     Active Substance: DEXPANTHENOL
     Indication: PRODUCT USED FOR UNKNOWN INDICATION
     Dosage: UNK, PRN
     Route: 061
     Dates: start: 20180211
  49. DRONABINOL. [Concomitant]
     Active Substance: DRONABINOL
     Indication: PRODUCT USED FOR UNKNOWN INDICATION
     Dosage: 9 GTT, DAILY
     Route: 048
     Dates: start: 201806, end: 20180625
  50. BETAMETHASONE VALERATE. [Concomitant]
     Active Substance: BETAMETHASONE VALERATE
     Indication: PRODUCT USED FOR UNKNOWN INDICATION
     Dosage: 0.1 %, BID
     Route: 061
     Dates: start: 2017, end: 201802
  51. PARACODIN                          /00063001/ [Concomitant]
     Indication: COUGH
     Dosage: 20 GTT, PRN
     Route: 048
     Dates: start: 20180623, end: 20180625
  52. PANTOLOC                           /01263201/ [Concomitant]
     Active Substance: PANTOPRAZOLE SODIUM
     Indication: PROPHYLAXIS
     Dosage: 40 MG, DAILY
     Route: 048
  53. VENDAL                             /00036302/ [Concomitant]
     Indication: PRODUCT USED FOR UNKNOWN INDICATION
     Dosage: 5 MG, UNK
     Route: 058
     Dates: start: 20180623, end: 20180626
  54. ZOFRAN [Concomitant]
     Active Substance: ONDANSETRON HYDROCHLORIDE
     Indication: NAUSEA
     Dosage: 24 MG, DAILY
     Route: 042
     Dates: start: 20180625, end: 20180626
  55. MOLAXOLE [Concomitant]
     Active Substance: POLYETHYLENE GLYCOL 3350\POTASSIUM CHLORIDE\SODIUM BICARBONATE\SODIUM CHLORIDE
     Indication: CONSTIPATION
     Dosage: 1 DF, PRN
     Route: 048
     Dates: start: 2017, end: 20180625
  56. SEDACORON [Concomitant]
     Active Substance: AMIODARONE HYDROCHLORIDE
     Indication: PRODUCT USED FOR UNKNOWN INDICATION
     Dosage: 200 MG, DAILY
     Route: 048
     Dates: start: 20180213, end: 20180625
  57. ELOMEL [Concomitant]
     Indication: PRODUCT USED FOR UNKNOWN INDICATION
     Dosage: 1000 ML, ONCE
     Route: 042
     Dates: start: 20180208, end: 20180208
  58. VOLTAREN [Concomitant]
     Active Substance: DICLOFENAC SODIUM
     Indication: PAIN
     Dosage: UNK, PRN
     Route: 061
     Dates: start: 20180210
  59. SOLUVIT                            /01591701/ [Concomitant]
     Indication: PRODUCT USED FOR UNKNOWN INDICATION
     Dosage: 500 ML, PRN
     Route: 042
     Dates: start: 20180622, end: 20180627
  60. UNASYN [Concomitant]
     Active Substance: AMPICILLIN SODIUM\SULBACTAM SODIUM
     Indication: C-REACTIVE PROTEIN INCREASED
     Dosage: 9 G, QD
     Route: 042
     Dates: start: 20180621, end: 20180627
  61. FRAGMIN [Concomitant]
     Active Substance: DALTEPARIN SODIUM
     Indication: PRODUCT USED FOR UNKNOWN INDICATION
     Dosage: 2500 IU, DAILY
     Route: 058
     Dates: start: 20180621, end: 20180628

REACTIONS (4)
  - Malignant neoplasm progression [Fatal]
  - General physical health deterioration [Unknown]
  - Atrial fibrillation [Unknown]
  - Thrombosis [Unknown]

NARRATIVE: CASE EVENT DATE: 20180628
